FAERS Safety Report 10173833 (Version 1)
Quarter: 2014Q2

REPORT INFORMATION
  Report Type: Spontaneous
  Country: US (occurrence: None)
  Receive Date: 20140514
  Receipt Date: 20140514
  Transmission Date: 20141212
  Serious: Yes (Life-Threatening, Hospitalization, Disabling, Other)
  Sender: FDA-Public Use
  Company Number: None

PATIENT
  Age: 56 Year
  Sex: Female
  Weight: 86.18 kg

DRUGS (1)
  1. FLUTICASONE PROPIONATE [Suspect]
     Indication: HYPERSENSITIVITY
     Dosage: 2 SPRAYS PER NOSTRIL @ BEDTIME, ONCE DAILY, INHALATION
     Route: 055
     Dates: start: 20140220, end: 20140303

REACTIONS (21)
  - Insomnia [None]
  - Anxiety [None]
  - Asthenia [None]
  - Fatigue [None]
  - Euphoric mood [None]
  - Dry mouth [None]
  - Irritability [None]
  - Cataract [None]
  - Blood pressure increased [None]
  - Mood swings [None]
  - Depression [None]
  - Panic attack [None]
  - Tinnitus [None]
  - Vision blurred [None]
  - Dysphonia [None]
  - Oedema [None]
  - Dizziness [None]
  - Delusion [None]
  - Feeling abnormal [None]
  - Fatigue [None]
  - Suicide attempt [None]
